FAERS Safety Report 12892639 (Version 1)
Quarter: 2016Q4

REPORT INFORMATION
  Report Type: Spontaneous
  Country: US (occurrence: US)
  Receive Date: 20161027
  Receipt Date: 20161027
  Transmission Date: 20170207
  Serious: No
  Sender: FDA-Public Use
  Company Number: None

PATIENT
  Age: 28 Year
  Sex: Female
  Weight: 103.97 kg

DRUGS (1)
  1. MIRENA [Suspect]
     Active Substance: LEVONORGESTREL
     Dates: start: 20150825

REACTIONS (4)
  - Depression [None]
  - Weight increased [None]
  - Alopecia [None]
  - Hair growth abnormal [None]

NARRATIVE: CASE EVENT DATE: 20151022
